FAERS Safety Report 22242586 (Version 1)
Quarter: 2023Q2

REPORT INFORMATION
  Report Type: Spontaneous
  Country: US (occurrence: None)
  Receive Date: 20230420
  Receipt Date: 20230420
  Transmission Date: 20230722
  Serious: Yes (Other)
  Sender: FDA-Public Use
  Company Number: None

PATIENT
  Age: 61 Year
  Sex: Male
  Weight: 68.49 kg

DRUGS (2)
  1. SUBOXONE [Suspect]
     Active Substance: BUPRENORPHINE HYDROCHLORIDE\NALOXONE HYDROCHLORIDE
     Indication: Drug dependence
     Dosage: FREQUENCY : DAILY;?
     Route: 060
     Dates: start: 20220601, end: 20230308
  2. NALOXINE [Concomitant]
     Dosage: FREQUENCY : 3 TIMES A DAY;?
     Route: 060

REACTIONS (3)
  - Headache [None]
  - Illness [None]
  - Insurance issue [None]

NARRATIVE: CASE EVENT DATE: 20230405
